FAERS Safety Report 5994807-7 (Version None)
Quarter: 2008Q4

REPORT INFORMATION
  Report Type: 
  Country: None (occurrence: None)
  Receive Date: 20081212
  Receipt Date: 20081014
  Transmission Date: 20090506
  Serious: No
  Sender: FDA-Public Use
  Company Number: US-ABBOTT-08P-163-0476321-00

PATIENT
  Sex: Female
  Weight: 90.8 kg

DRUGS (9)
  1. HUMIRA [Suspect]
     Indication: CROHN'S DISEASE
     Route: 050
     Dates: start: 20080501
  2. HUMIRA [Suspect]
     Route: 050
     Dates: start: 20080912
  3. MERCAPTOPURINE [Concomitant]
     Indication: CROHN'S DISEASE
     Route: 048
     Dates: start: 20060101
  4. MESALAMINE [Concomitant]
     Indication: CROHN'S DISEASE
     Route: 048
     Dates: start: 20060101
  5. PHENERGAN HCL [Concomitant]
     Indication: NAUSEA
     Dosage: AS NEEDED
     Route: 048
     Dates: start: 20050101
  6. DICYCLOMINE HCL [Concomitant]
     Indication: CROHN'S DISEASE
     Dosage: AS NEEDED
     Route: 048
     Dates: start: 20060101
  7. DRONABINOL [Concomitant]
     Indication: PROPHYLAXIS OF NAUSEA AND VOMITING
     Dosage: AS NEEDED
     Route: 048
     Dates: start: 20080101
  8. DRONABINOL [Concomitant]
     Indication: CROHN'S DISEASE
  9. LOMOTIL [Concomitant]
     Indication: DIARRHOEA
     Dosage: 1-4 PILLS AS NEEDED
     Dates: start: 20060101

REACTIONS (4)
  - ACCIDENTAL NEEDLE STICK [None]
  - DYSPEPSIA [None]
  - INJECTION SITE HAEMORRHAGE [None]
  - INJECTION SITE PAIN [None]
